FAERS Safety Report 10149818 (Version 2)
Quarter: 2014Q2

REPORT INFORMATION
  Report Type: Spontaneous
  Country: AU (occurrence: None)
  Receive Date: 20140430
  Receipt Date: 20140604
  Transmission Date: 20141212
  Serious: Yes (Hospitalization)
  Sender: FDA-Public Use
  Company Number: AUR-APL-2014-05166

PATIENT
  Sex: Female

DRUGS (6)
  1. SIMVASTATIN (SIMVASTATIN) [Suspect]
     Indication: PRODUCT USED FOR UNKNOWN INDICATION
  2. PANTOPRAZOLE (PANTOPRAZOLE) [Suspect]
     Indication: PRODUCT USED FOR UNKNOWN INDICATION
  3. EXFORGE HCT (DIOVAN TRIPLE) [Suspect]
     Indication: HYPERTENSION
     Dosage: 10 MG/ 25MG/ 160MG, UNKNOWN
  4. JENTADUETO (JENTADUETO) [Suspect]
     Indication: PRODUCT USED FOR UNKNOWN INDICATION
  5. THROMBO ASS (ACETYLSALICYLIC ACID) [Suspect]
     Indication: PRODUCT USED FOR UNKNOWN INDICATION
  6. EBRANTIL (URAPIDIL) [Concomitant]

REACTIONS (4)
  - Malaise [None]
  - Malaise [None]
  - Blood pressure decreased [None]
  - Blood pressure inadequately controlled [None]
